FAERS Safety Report 8799465 (Version 1)
Quarter: 2012Q4

REPORT INFORMATION
  Report Type: 
  Country: US (occurrence: US)
  Receive Date: 20120919
  Receipt Date: 20120919
  Transmission Date: 20130627
  Serious: Yes (Death)
  Sender: FDA-Public Use
  Company Number: US-MYLANLABS-2009S1010900

PATIENT
  Age: 71 Year
  Sex: Female
  Weight: 62.6 kg

DRUGS (21)
  1. FENTANYL TRANSDERMAL SYSTEM [Suspect]
     Indication: PAIN
     Route: 062
     Dates: end: 20070615
  2. FENTANYL TRANSDERMAL SYSTEM [Suspect]
     Indication: PAIN
     Route: 062
     Dates: start: 20070614, end: 20070615
  3. OXYCODONE [Suspect]
     Indication: PAIN
  4. HYDROCODONE/APAP [Concomitant]
     Indication: PAIN
  5. LEXAPRO [Concomitant]
  6. ALPRAZOLAM [Concomitant]
  7. ENULOSE [Concomitant]
     Dosage: 10mg per 15ml
  8. SYNTHROID [Concomitant]
     Indication: HYPOTHYROIDISM
     Route: 048
  9. ULTRAM [Concomitant]
  10. VITAMIN D [Concomitant]
  11. PLAVIX [Concomitant]
     Route: 048
  12. LIPITOR [Concomitant]
     Route: 048
  13. AMBIEN [Concomitant]
     Route: 048
  14. BONIVA [Concomitant]
     Route: 048
  15. FLEXERIL [Concomitant]
     Route: 048
  16. ELMIRON [Concomitant]
     Route: 048
  17. COZAAR [Concomitant]
     Route: 048
  18. MVI [Concomitant]
  19. CITRACAL /00751520/ [Concomitant]
  20. PROTONIX [Concomitant]
     Route: 048
  21. CYMBALTA [Concomitant]
     Route: 048

REACTIONS (4)
  - Toxicity to various agents [Fatal]
  - Overdose [Fatal]
  - Dyspnoea [None]
  - Pain [None]
